FAERS Safety Report 16087903 (Version 1)
Quarter: 2019Q1

REPORT INFORMATION
  Report Type: Spontaneous
  Country: IT (occurrence: IT)
  Receive Date: 20190319
  Receipt Date: 20190319
  Transmission Date: 20190418
  Serious: Yes (Other)
  Sender: FDA-Public Use
  Company Number: IT-AUROBINDO-AUR-APL-2019-014061

PATIENT

DRUGS (7)
  1. MADOPAR [Concomitant]
     Active Substance: BENSERAZIDE HYDROCHLORIDE\LEVODOPA
     Indication: PARKINSONISM
     Dosage: UNK
     Route: 065
  2. CARDIOASPIRIN [Concomitant]
     Active Substance: ASPIRIN
     Indication: ENCEPHALOPATHY
     Dosage: UNK
     Route: 065
  3. CALCIJEX [Concomitant]
     Active Substance: CALCITRIOL
     Indication: HYPOVITAMINOSIS
     Dosage: UNK
     Route: 065
  4. PANTOPRAZOLE [Concomitant]
     Active Substance: PANTOPRAZOLE
     Indication: HYPERCHLORHYDRIA
     Dosage: UNK
     Route: 065
  5. QUETIAPINE. [Suspect]
     Active Substance: QUETIAPINE
     Indication: PSYCHOTIC DISORDER
     Dosage: 25 MILLIGRAM, ONCE A DAY
     Route: 048
     Dates: start: 20190101, end: 20190207
  6. JUMEX [Concomitant]
     Active Substance: SELEGILINE HYDROCHLORIDE
     Indication: PARKINSONISM
     Dosage: UNK
     Route: 065
  7. TAREG [Concomitant]
     Active Substance: VALSARTAN
     Indication: HYPERTENSION
     Dosage: UNK
     Route: 065

REACTIONS (2)
  - Musculoskeletal chest pain [Recovering/Resolving]
  - Drop attacks [Recovering/Resolving]

NARRATIVE: CASE EVENT DATE: 20190207
